FAERS Safety Report 19370930 (Version 1)
Quarter: 2021Q2

REPORT INFORMATION
  Report Type: Spontaneous
  Country: FR (occurrence: FR)
  Receive Date: 20210604
  Receipt Date: 20210604
  Transmission Date: 20210717
  Serious: Yes (Hospitalization)
  Sender: FDA-Public Use
  Company Number: FR-TEVA-2021-FR-1917839

PATIENT
  Age: 68 Year
  Sex: Female

DRUGS (2)
  1. OXALIPLATINE ACCORD [Suspect]
     Active Substance: OXALIPLATIN
     Indication: ADENOCARCINOMA OF COLON
     Route: 042
     Dates: start: 20210506, end: 20210506
  2. CAPECITABINE. [Suspect]
     Active Substance: CAPECITABINE
     Indication: ADENOCARCINOMA OF COLON
     Dosage: THERAPY END DATE :NOT ASKED:UNIT DOSE:2600MILLIGRAM
     Route: 048
     Dates: start: 20210506

REACTIONS (4)
  - Asthenia [Recovering/Resolving]
  - Muscle spasms [Recovered/Resolved]
  - Nausea [Recovered/Resolved]
  - Formication [Recovering/Resolving]

NARRATIVE: CASE EVENT DATE: 20210506
